FAERS Safety Report 8608217 (Version 2)
Quarter: 2012Q4

REPORT INFORMATION
  Report Type: 
  Country: US (occurrence: US)
  Receive Date: 20120611
  Receipt Date: 20121120
  Transmission Date: 20130627
  Serious: No
  Sender: FDA-Public Use
  Company Number: US-ASTRAZENECA-2012SE35173

PATIENT
  Age: 57 Year
  Sex: Male
  Weight: 89.4 kg

DRUGS (23)
  1. NEXIUM [Suspect]
     Indication: HYPERCHLORHYDRIA
     Route: 048
     Dates: start: 1982
  2. BENICAR HCT [Concomitant]
     Dosage: 20-12.5 MG
     Dates: start: 20080923
  3. PLAVIX [Concomitant]
     Route: 048
     Dates: start: 20080923
  4. BUTALBITAL/APAP/CAFFEINE [Concomitant]
     Dates: start: 20080923
  5. LEXAPRO [Concomitant]
     Dates: start: 20080923
  6. LIPITOR [Concomitant]
     Dates: start: 20080923
  7. MECLIZINE [Concomitant]
     Indication: DIZZINESS
     Dates: start: 20080923
  8. METFORMIN [Concomitant]
     Dates: start: 20080923
  9. METOPROLOL [Concomitant]
     Dates: start: 20080923
  10. LYRICA [Concomitant]
     Indication: PAIN
     Dates: start: 20080923
  11. XYZAL [Concomitant]
     Dates: start: 20080930
  12. PRAVASTATIN [Concomitant]
     Dates: start: 20081017
  13. GABAPENTIN [Concomitant]
     Dates: start: 20081017
  14. OMEPRAZOLE [Concomitant]
     Dates: start: 20081017
  15. FENOFIBRATE [Concomitant]
     Indication: LIPIDS ABNORMAL
     Dates: start: 20081017
  16. LISINOPRIL [Concomitant]
     Indication: BLOOD PRESSURE ABNORMAL
     Route: 048
     Dates: start: 20081022
  17. LORATADINE [Concomitant]
     Dates: start: 20081022
  18. ACTOS [Concomitant]
     Dates: start: 20081022
  19. CADUET [Concomitant]
     Dosage: 10/40 TABLET TAKE 1 TABLET BY MOUTH DAILY
     Dates: start: 20081022
  20. JANUMET [Concomitant]
     Dosage: 50/500 MG TABLET TAKE 1 TABLET BY MOUTH QD WITH MEALS
     Dates: start: 20081022
  21. LOVAZA [Concomitant]
     Dates: start: 20081022
  22. LEVOCETIRIZINE DIHYDROCHLORIDE [Concomitant]
     Dosage: 5 MG TAKE 1 TABLET BY MOUTH EACH EVENING
     Dates: start: 20111109
  23. NAPROXEN [Concomitant]
     Indication: DYSPEPSIA
     Dates: start: 20111109

REACTIONS (3)
  - Osteoporosis [Unknown]
  - Multiple fractures [Unknown]
  - Osteopenia [Unknown]
